FAERS Safety Report 5099022-X (Version None)
Quarter: 2006Q3

REPORT INFORMATION
  Report Type: 
  Country: None (occurrence: None)
  Receive Date: 20060907
  Receipt Date: 20060828
  Transmission Date: 20061208
  Serious: Yes (Other)
  Sender: FDA-Public Use
  Company Number: GB-ABBOTT-06P-167-0342407-00

PATIENT
  Sex: Male

DRUGS (2)
  1. DEPAKOTE [Suspect]
     Indication: DRUG USE FOR UNKNOWN INDICATION
     Dates: start: 20060816
  2. DEPAKOTE [Suspect]
     Dates: start: 20060719, end: 20060815

REACTIONS (5)
  - AGGRESSION [None]
  - BREAST MASS [None]
  - HALLUCINATION [None]
  - NIPPLE PAIN [None]
  - TESTICULAR PAIN [None]
